FAERS Safety Report 20382974 (Version 2)
Quarter: 2022Q1

REPORT INFORMATION
  Report Type: Spontaneous
  Country: US (occurrence: US)
  Receive Date: 20220127
  Receipt Date: 20220221
  Transmission Date: 20220424
  Serious: Yes (Other)
  Sender: FDA-Public Use
  Company Number: US-009507513-2201USA006490

PATIENT
  Sex: Male
  Weight: 80.272 kg

DRUGS (23)
  1. KEYTRUDA [Suspect]
     Active Substance: PEMBROLIZUMAB
     Indication: Renal cell carcinoma
     Dosage: 200 MILLIGRAM, EVERY 3 WEEKS (FIRST CYCLE)
     Route: 042
     Dates: start: 20201014
  2. KEYTRUDA [Suspect]
     Active Substance: PEMBROLIZUMAB
     Dosage: 200 MILLIGRAM, EVERY 3 WEEKS
     Route: 042
     Dates: start: 20210113, end: 2021
  3. KEYTRUDA [Suspect]
     Active Substance: PEMBROLIZUMAB
     Dosage: 200 MILLIGRAM, Q3W
     Route: 042
     Dates: start: 20210224
  4. INLYTA [Suspect]
     Active Substance: AXITINIB
     Indication: Renal cell carcinoma
     Dosage: UNK
     Dates: start: 20201020
  5. INLYTA [Suspect]
     Active Substance: AXITINIB
     Dosage: UNK
     Dates: start: 20210119, end: 202102
  6. INLYTA [Suspect]
     Active Substance: AXITINIB
     Dosage: REDUCED DOSE OF 2 MG TWICE A DAY
     Dates: start: 20210406, end: 2021
  7. INLYTA [Suspect]
     Active Substance: AXITINIB
     Dosage: INCREASED TO 3 MG TWICE A DAY
     Dates: start: 202106, end: 20210916
  8. INLYTA [Suspect]
     Active Substance: AXITINIB
     Dosage: REDUCED DOSE OF 2 MG EVERY 12 HOURS
     Dates: start: 2021
  9. DENOSUMAB [Suspect]
     Active Substance: DENOSUMAB
     Dosage: 120 MILLIGRAM, EVERY 6 WEEKS
     Route: 058
  10. ALPRAZOLAM [Concomitant]
     Active Substance: ALPRAZOLAM
  11. ELIQUIS [Concomitant]
     Active Substance: APIXABAN
  12. LIPITOR [Concomitant]
     Active Substance: ATORVASTATIN CALCIUM
  13. LASIX [Concomitant]
     Active Substance: FUROSEMIDE
  14. HYDRALAZINE [Concomitant]
     Active Substance: HYDRALAZINE HYDROCHLORIDE
  15. NORCO [Concomitant]
     Active Substance: ACETAMINOPHEN\HYDROCODONE BITARTRATE
  16. MEGACE [Concomitant]
     Active Substance: MEGESTROL ACETATE
  17. LOPRESSOR [Concomitant]
     Active Substance: METOPROLOL TARTRATE
  18. ZOFRAN [Concomitant]
     Active Substance: ONDANSETRON HYDROCHLORIDE
  19. OMEPRAZOLE [Concomitant]
     Active Substance: OMEPRAZOLE
  20. POTASSIUM [Concomitant]
     Active Substance: POTASSIUM
  21. VITAMIN A [Concomitant]
     Active Substance: VITAMIN A
  22. VITAMIN C [Concomitant]
     Active Substance: ASCORBIC ACID
  23. VITAMIN E\VITAMINS [Concomitant]
     Active Substance: .ALPHA.-TOCOPHEROL\VITAMINS

REACTIONS (9)
  - Atrial fibrillation [Unknown]
  - Malignant neoplasm progression [Unknown]
  - Therapeutic product effect variable [Unknown]
  - Weight decreased [Unknown]
  - Insomnia [Unknown]
  - Asthenia [Not Recovered/Not Resolved]
  - Decreased appetite [Unknown]
  - Dyspnoea [Not Recovered/Not Resolved]
  - Diarrhoea [Unknown]

NARRATIVE: CASE EVENT DATE: 20210101
